FAERS Safety Report 8277001-9 (Version None)
Quarter: 2012Q2

REPORT INFORMATION
  Report Type: 
  Country: None (occurrence: None)
  Receive Date: 20120412
  Receipt Date: 20120402
  Transmission Date: 20120825
  Serious: Yes (Hospitalization)
  Sender: FDA-Public Use
  Company Number: IT-ROCHE-1056004

PATIENT
  Sex: Male

DRUGS (14)
  1. BECLOMETHASONE DIPROPIONATE [Concomitant]
     Indication: PRODUCT USED FOR UNKNOWN INDICATION
     Route: 045
     Dates: start: 20111218, end: 20111228
  2. RAMIPRIL [Concomitant]
     Route: 048
     Dates: start: 20050118, end: 20111228
  3. AMIODARONE HCL [Concomitant]
     Route: 048
     Dates: start: 20050118, end: 20111228
  4. MEDROL [Concomitant]
     Route: 048
     Dates: start: 20050921, end: 20111228
  5. ASPIRIN [Concomitant]
     Route: 048
     Dates: start: 20050118, end: 20111228
  6. ROCEPHIN [Suspect]
     Indication: PRODUCT USED FOR UNKNOWN INDICATION
     Route: 030
     Dates: start: 20111218, end: 20111228
  7. UNOPROST (ITALY) [Concomitant]
     Route: 048
     Dates: start: 20050118, end: 20111228
  8. KLACID (ITALY) [Suspect]
     Indication: PRODUCT USED FOR UNKNOWN INDICATION
     Route: 048
     Dates: start: 20111218, end: 20111228
  9. MINITRAN [Concomitant]
     Route: 062
     Dates: start: 20091008, end: 20111228
  10. FINASTERIDE [Concomitant]
     Route: 048
     Dates: start: 20050118, end: 20111228
  11. UNOPROST (ITALY) [Concomitant]
     Route: 048
     Dates: start: 20050118, end: 20111228
  12. LANSOPRAZOLE [Concomitant]
     Route: 048
     Dates: start: 20081029, end: 20111228
  13. FUROSEMIDE [Concomitant]
     Dates: start: 20050214, end: 20111228
  14. BREVA [Concomitant]
     Indication: PRODUCT USED FOR UNKNOWN INDICATION
     Dates: start: 20111218, end: 20111228

REACTIONS (5)
  - DYSPNOEA [None]
  - HYPERSENSITIVITY [None]
  - BLOOD PRESSURE INCREASED [None]
  - DERMATITIS ALLERGIC [None]
  - HEART RATE INCREASED [None]
